FAERS Safety Report 8056317-5 (Version None)
Quarter: 2012Q1

REPORT INFORMATION
  Report Type: 
  Country: None (occurrence: None)
  Receive Date: 20120119
  Receipt Date: 20120109
  Transmission Date: 20120608
  Serious: Yes (Other)
  Sender: FDA-Public Use
  Company Number: US-BAXTER-2011BH037276

PATIENT
  Age: 72 Year
  Sex: Female
  Weight: 42 kg

DRUGS (19)
  1. GAMMAGARD LIQUID [Suspect]
     Indication: OFF LABEL USE
     Route: 042
     Dates: start: 20111017, end: 20111017
  2. GAMMAGARD LIQUID [Suspect]
     Route: 042
     Dates: start: 20111017, end: 20111017
  3. GAMMAGARD LIQUID [Suspect]
     Route: 042
     Dates: start: 20110117
  4. GAMMAGARD LIQUID [Suspect]
     Route: 042
     Dates: start: 20111118, end: 20111118
  5. ACETAMINOPHEN [Concomitant]
     Indication: PREMEDICATION
     Route: 048
     Dates: start: 20111017, end: 20111017
  6. GAMMAGARD LIQUID [Suspect]
     Route: 042
     Dates: start: 20111017, end: 20111017
  7. GAMMAGARD LIQUID [Suspect]
     Route: 042
     Dates: start: 20111118, end: 20111118
  8. VITAMIN B-12 [Concomitant]
     Indication: PRODUCT USED FOR UNKNOWN INDICATION
     Route: 048
  9. GAMMAGARD LIQUID [Suspect]
     Indication: POLYMYOSITIS
     Route: 042
     Dates: start: 20111017, end: 20111017
  10. FOSAMAX [Concomitant]
     Indication: PRODUCT USED FOR UNKNOWN INDICATION
     Route: 048
  11. ACETAMINOPHEN [Concomitant]
     Route: 048
     Dates: start: 20111114, end: 20111114
  12. GAMMAGARD LIQUID [Suspect]
     Route: 042
     Dates: start: 20110117
  13. LUMIGAN [Suspect]
     Indication: PRODUCT USED FOR UNKNOWN INDICATION
     Route: 047
  14. MYCOPHENOLATE MOFETIL (CELLCEPT) [Concomitant]
     Indication: PRODUCT USED FOR UNKNOWN INDICATION
     Route: 048
  15. CALCIUM [Concomitant]
     Indication: PRODUCT USED FOR UNKNOWN INDICATION
     Route: 048
  16. BENADRYL [Concomitant]
     Indication: PREMEDICATION
     Route: 042
     Dates: start: 20111017, end: 20111017
  17. GAMMAGARD LIQUID [Suspect]
     Route: 042
     Dates: start: 20111118, end: 20111118
  18. GAMMAGARD LIQUID [Suspect]
     Route: 042
     Dates: start: 20111118, end: 20111118
  19. PREDNISONE TAB [Concomitant]
     Indication: MYOPATHY
     Route: 048

REACTIONS (3)
  - CONDITION AGGRAVATED [None]
  - UVEITIS [None]
  - EYE PAIN [None]
